FAERS Safety Report 7433002-1 (Version None)
Quarter: 2011Q2

REPORT INFORMATION
  Report Type: 
  Country: None (occurrence: None)
  Receive Date: 20110422
  Receipt Date: 20110413
  Transmission Date: 20111010
  Serious: No
  Sender: FDA-Public Use
  Company Number: US-B.I. PHARMACEUTICALS,INC./RIDGEFIELD-2011-BP-10769BP

PATIENT
  Age: 65 Year
  Sex: Female

DRUGS (3)
  1. PRADAXA [Suspect]
     Indication: ATRIAL FIBRILLATION
     Dosage: 300 MG
     Route: 048
     Dates: start: 20101001
  2. QUINAPRIL/HCTZ [Concomitant]
     Indication: HYPERTENSION
  3. ONGLYZA [Concomitant]
     Indication: DIABETES MELLITUS

REACTIONS (5)
  - CONTUSION [None]
  - PAIN IN EXTREMITY [None]
  - BLOOD PRESSURE FLUCTUATION [None]
  - PAIN [None]
  - BLOOD PRESSURE ABNORMAL [None]
